FAERS Safety Report 6895655-6 (Version None)
Quarter: 2010Q3

REPORT INFORMATION
  Report Type: 
  Country: None (occurrence: None)
  Receive Date: 20100802
  Receipt Date: 20100719
  Transmission Date: 20110219
  Serious: Yes (Other)
  Sender: FDA-Public Use
  Company Number: US-JNJFOC-20100708741

PATIENT
  Sex: Female

DRUGS (5)
  1. CHILDREN'S TYLENOL PLUS MULTI-SYMPTOM COLD [Suspect]
     Indication: RHINORRHOEA
     Dosage: TAKING 3.5ML OR 5ML.
     Route: 048
  2. CHILDREN'S TYLENOL PLUS MULTI-SYMPTOM COLD [Suspect]
     Indication: PYREXIA
     Dosage: TAKING 3.5ML OR 5ML.
     Route: 048
  3. CHILDREN'S TYLENOL PLUS MULTI-SYMPTOM COLD [Suspect]
     Indication: NASOPHARYNGITIS
     Dosage: TAKING 3.5ML OR 5ML.
     Route: 048
  4. CHILDREN'S MOTRIN [Suspect]
  5. CHILDREN'S MOTRIN [Suspect]
     Indication: PYREXIA

REACTIONS (6)
  - DIARRHOEA [None]
  - DRUG INEFFECTIVE [None]
  - INAPPROPRIATE SCHEDULE OF DRUG ADMINISTRATION [None]
  - MALAISE [None]
  - PRODUCT QUALITY ISSUE [None]
  - PYREXIA [None]
